FAERS Safety Report 7367260-9 (Version None)
Quarter: 2011Q1

REPORT INFORMATION
  Report Type: 
  Country: None (occurrence: None)
  Receive Date: 20110322
  Receipt Date: 20110318
  Transmission Date: 20110831
  Serious: Yes (Death, Other)
  Sender: FDA-Public Use
  Company Number: CN-ASTRAZENECA-2011SE08993

PATIENT
  Age: 92 Year
  Sex: Male

DRUGS (1)
  1. CASODEX [Suspect]
     Indication: PROSTATE CANCER
     Route: 048
     Dates: start: 20090303, end: 20090326

REACTIONS (3)
  - MULTI-ORGAN FAILURE [None]
  - HAEMATURIA [None]
  - THROMBOCYTOPENIA [None]
